FAERS Safety Report 9674212 (Version 2)
Quarter: 2014Q2

REPORT INFORMATION
  Report Type: Spontaneous
  Country: DE (occurrence: DE)
  Receive Date: 20131106
  Receipt Date: 20140619
  Transmission Date: 20141212
  Serious: Yes (Death)
  Sender: FDA-Public Use
  Company Number: DE-ELI_LILLY_AND_COMPANY-DE201311001216

PATIENT
  Age: 62 Year
  Sex: Female

DRUGS (3)
  1. INSULIN LISPRO [Suspect]
     Indication: SUICIDE ATTEMPT
     Route: 065
  2. FENTANYL [Suspect]
     Indication: PRODUCT USED FOR UNKNOWN INDICATION
     Dosage: 150 UG, UNK
     Route: 062
  3. MORPHINE [Suspect]
     Indication: PRODUCT USED FOR UNKNOWN INDICATION
     Route: 065

REACTIONS (4)
  - Death [Fatal]
  - Hypoglycaemia [Fatal]
  - Completed suicide [Fatal]
  - Intentional overdose [Not Recovered/Not Resolved]
